FAERS Safety Report 20231696 (Version 1)
Quarter: 2021Q4

REPORT INFORMATION
  Report Type: Spontaneous
  Country: US (occurrence: US)
  Receive Date: 20211227
  Receipt Date: 20211227
  Transmission Date: 20220304
  Serious: No
  Sender: FDA-Public Use
  Company Number: US-AVEO ONCOLOGY-2021-AVEO-US003692

PATIENT

DRUGS (10)
  1. FOTIVDA [Suspect]
     Active Substance: TIVOZANIB HYDROCHLORIDE
     Indication: Renal cell carcinoma
     Dosage: 1.34 MG, DAILY, FOR 21 DAYS, THEN 7 DAYS OFF
     Route: 048
     Dates: start: 20211014
  2. FENOFIBRATE [Concomitant]
     Active Substance: FENOFIBRATE
  3. CLONIDINE [Concomitant]
     Active Substance: CLONIDINE
  4. FERROUS SULFATE [Concomitant]
     Active Substance: FERROUS SULFATE
  5. SIMVASTATIN [Concomitant]
     Active Substance: SIMVASTATIN
  6. PHOSPHORUS [Concomitant]
     Active Substance: PHOSPHORUS
  7. CALCIUM CARBONATE [Concomitant]
     Active Substance: CALCIUM CARBONATE
  8. TRAMADOL [Concomitant]
     Active Substance: TRAMADOL
  9. XGEVA [Concomitant]
     Active Substance: DENOSUMAB
  10. CABOMETYX [Concomitant]
     Active Substance: CABOZANTINIB S-MALATE

REACTIONS (1)
  - Diarrhoea [Recovered/Resolved]
